FAERS Safety Report 8598092-1 (Version None)
Quarter: 2012Q3

REPORT INFORMATION
  Report Type: 
  Country: None (occurrence: None)
  Receive Date: 20120802
  Receipt Date: 20120723
  Transmission Date: 20120928
  Serious: Yes (Other)
  Sender: FDA-Public Use
  Company Number: 2012AP002203

PATIENT
  Sex: Female

DRUGS (2)
  1. ALENDRONATE SODIUM [Suspect]
     Indication: OSTEOPOROSIS
  2. ALENDRONATE SODIUM [Suspect]
     Indication: OSTEOPOROSIS
     Dates: start: 20080201

REACTIONS (8)
  - OSTEONECROSIS OF JAW [None]
  - QUALITY OF LIFE DECREASED [None]
  - INJURY [None]
  - PAIN [None]
  - JAW DISORDER [None]
  - ANXIETY [None]
  - LOW TURNOVER OSTEOPATHY [None]
  - ANHEDONIA [None]
